FAERS Safety Report 5795836-9 (Version None)
Quarter: 2008Q3

REPORT INFORMATION
  Report Type: 
  Country: None (occurrence: None)
  Receive Date: 20080701
  Receipt Date: 20080617
  Transmission Date: 20090109
  Serious: Yes (Hospitalization)
  Sender: FDA-Public Use
  Company Number: GB-BAYER-200811577BNE

PATIENT
  Sex: Male

DRUGS (1)
  1. TRASYLOL [Suspect]
     Indication: POST PROCEDURAL HAEMORRHAGE

REACTIONS (7)
  - CEREBROVASCULAR ACCIDENT [None]
  - CLUMSINESS [None]
  - DEPRESSION [None]
  - DYSARTHRIA [None]
  - HAEMORRHAGE [None]
  - MOBILITY DECREASED [None]
  - PARALYSIS [None]
